APPROVED DRUG PRODUCT: COSOPT PF
Active Ingredient: DORZOLAMIDE HYDROCHLORIDE; TIMOLOL MALEATE
Strength: EQ 2% BASE;EQ 0.5% BASE
Dosage Form/Route: SOLUTION/DROPS;OPHTHALMIC
Application: N202667 | Product #001 | TE Code: AT2
Applicant: THEA PHARMA INC
Approved: Feb 1, 2012 | RLD: Yes | RS: Yes | Type: RX